FAERS Safety Report 7267403-1 (Version None)
Quarter: 2011Q1

REPORT INFORMATION
  Report Type: 
  Country: None (occurrence: None)
  Receive Date: 20110201
  Receipt Date: 20101022
  Transmission Date: 20110831
  Serious: No
  Sender: FDA-Public Use
  Company Number: A0888317A

PATIENT
  Sex: Male

DRUGS (2)
  1. LOVENOX [Concomitant]
  2. ARIXTRA [Suspect]
     Route: 065

REACTIONS (1)
  - ANTI FACTOR IX ANTIBODY NEGATIVE [None]
